FAERS Safety Report 12770316 (Version 1)
Quarter: 2016Q3

REPORT INFORMATION
  Report Type: Spontaneous
  Country: US (occurrence: US)
  Receive Date: 20160922
  Receipt Date: 20160922
  Transmission Date: 20161109
  Serious: No
  Sender: FDA-Public Use
  Company Number: US-JNJFOC-20160915682

PATIENT
  Age: 19 Year
  Sex: Male
  Weight: 72.58 kg

DRUGS (3)
  1. ZYRTEC 10MG IR TABLET [Suspect]
     Active Substance: CETIRIZINE HYDROCHLORIDE
     Route: 048
  2. IBUPROFEN. [Concomitant]
     Active Substance: IBUPROFEN
     Indication: PAIN
     Route: 065
     Dates: start: 20160914
  3. ZYRTEC 10MG IR TABLET [Suspect]
     Active Substance: CETIRIZINE HYDROCHLORIDE
     Indication: MULTIPLE ALLERGIES
     Dosage: A TOTAL OF 2 TABLETS WITH 8 HOUR INTERVAL
     Route: 048

REACTIONS (2)
  - Extra dose administered [Unknown]
  - Nasal congestion [Unknown]

NARRATIVE: CASE EVENT DATE: 20160914
